FAERS Safety Report 9226553 (Version 2)
Quarter: 2013Q4

REPORT INFORMATION
  Report Type: Report from Study
  Country: IN (occurrence: IN)
  Receive Date: 20130412
  Receipt Date: 20131111
  Transmission Date: 20140711
  Serious: Yes (Hospitalization)
  Sender: FDA-Public Use
  Company Number: IN-BIOGENIDEC-2012BI010201

PATIENT
  Age: 40 Year
  Sex: Female
  Weight: 48 kg

DRUGS (2)
  1. BG00012 [Suspect]
     Indication: MULTIPLE SCLEROSIS
     Dates: start: 20110421
  2. DICLOFENAC [Concomitant]
     Indication: PAIN IN EXTREMITY
     Route: 048
     Dates: start: 20110809

REACTIONS (1)
  - Cellulitis [Recovered/Resolved with Sequelae]
